FAERS Safety Report 9106548 (Version 3)
Quarter: 2013Q2

REPORT INFORMATION
  Report Type: Report from Study
  Country: BR (occurrence: BR)
  Receive Date: 20130221
  Receipt Date: 20130523
  Transmission Date: 20140414
  Serious: Yes (Death, Hospitalization, Other)
  Sender: FDA-Public Use
  Company Number: PHHY2013BR015880

PATIENT
  Age: 83 Year
  Sex: Female

DRUGS (9)
  1. EXELON PATCH [Suspect]
     Dosage: 9.5 MG, (18 MG/10 CM2)
     Route: 062
  2. EXELON PATCH [Suspect]
     Dosage: 4.6 MG, (9 MG/5 CM2)
     Route: 062
  3. EXELON PATCH [Suspect]
     Dosage: 13.3 MG, (27 MG/15 CM2)
     Route: 062
  4. EXELON [Suspect]
     Dosage: 50 ML, DAILY
     Route: 048
  5. EXELON [Suspect]
     Dosage: 120 ML, DAILY
     Route: 048
  6. EXELON [Suspect]
     Dosage: 4.5 MG, UNK
     Route: 048
  7. EXELON [Suspect]
     Dosage: 6 MG, UNK
     Route: 048
  8. EXELON [Suspect]
     Dosage: 3 MG, UNK
  9. EXELON [Suspect]
     Dosage: 1.5 MG, UNK

REACTIONS (3)
  - Pneumonia [Fatal]
  - Influenza [Fatal]
  - Cardiac arrest [Fatal]
